FAERS Safety Report 10735436 (Version 2)
Quarter: 2015Q2

REPORT INFORMATION
  Report Type: Report from Study
  Country: NL (occurrence: NL)
  Receive Date: 20150126
  Receipt Date: 20150408
  Transmission Date: 20150821
  Serious: Yes (Other)
  Sender: FDA-Public Use
  Company Number: NL-ROCHE-1524573

PATIENT

DRUGS (2)
  1. ALTEPLASE [Suspect]
     Active Substance: ALTEPLASE
     Indication: ISCHAEMIC STROKE
     Dosage: DOSE: MAXIMUM DOSE OF 90 MG OF ALTEPLASE?THE DOSE WAS RESTRICTED TO 30 MG OF ALTEPLASE IF INTRAVENOU
     Route: 042
  2. UROKINASE [Suspect]
     Active Substance: UROKINASE
     Indication: ISCHAEMIC STROKE
     Dosage: DOSE: MAXIMUM 1,200,000 IU OF UROKINASE?THE DOSE WAS RESTRICTED TO 400,000 IU OF UROKINASE IF INTRAV
     Route: 065

REACTIONS (8)
  - Haemorrhagic infarction [Unknown]
  - Ischaemic stroke [Unknown]
  - Infection [Unknown]
  - Myocardial ischaemia [Unknown]
  - Pneumonia [Unknown]
  - Hypersensitivity [Unknown]
  - Cerebral haematoma [Unknown]
  - Subarachnoid haemorrhage [Unknown]
